FAERS Safety Report 25334854 (Version 2)
Quarter: 2025Q2

REPORT INFORMATION
  Report Type: Spontaneous
  Country: GB (occurrence: GB)
  Receive Date: 20250520
  Receipt Date: 20250528
  Transmission Date: 20250716
  Serious: Yes (Life-Threatening, Hospitalization, Other)
  Sender: MSN LABORATORIES PRIVATE LIMITED
  Company Number: GB-MSNLABS-2025MSNLIT01160

PATIENT

DRUGS (8)
  1. PREGABALIN [Suspect]
     Active Substance: PREGABALIN
     Indication: Product used for unknown indication
     Route: 048
  2. CODEINE [Suspect]
     Active Substance: CODEINE
     Indication: Product used for unknown indication
     Route: 065
  3. DIAZEPAM [Suspect]
     Active Substance: DIAZEPAM
     Indication: Product used for unknown indication
     Route: 048
  4. FENTANYL [Suspect]
     Active Substance: FENTANYL
     Indication: Product used for unknown indication
     Route: 065
  5. MORPHINE [Suspect]
     Active Substance: MORPHINE
     Indication: Product used for unknown indication
     Route: 065
  6. MIRTAZAPINE [Concomitant]
     Active Substance: MIRTAZAPINE
     Indication: Depression
     Route: 065
  7. METHADONE [Concomitant]
     Active Substance: METHADONE HYDROCHLORIDE
     Indication: Depression
     Route: 065
  8. LAMOTRIGINE [Concomitant]
     Active Substance: LAMOTRIGINE
     Indication: Depression
     Route: 065

REACTIONS (11)
  - Respiratory failure [Recovering/Resolving]
  - Pericardial effusion [Recovered/Resolved]
  - Pulmonary hypertension [Recovering/Resolving]
  - Pneumonia [Recovering/Resolving]
  - Ascites [Recovering/Resolving]
  - Pulmonary congestion [Recovering/Resolving]
  - Atelectasis [Recovering/Resolving]
  - Overdose [Unknown]
  - Pleural effusion [Recovering/Resolving]
  - False positive investigation result [Unknown]
  - Drug abuse [Unknown]
